FAERS Safety Report 5631202-4 (Version None)
Quarter: 2008Q1

REPORT INFORMATION
  Report Type: 
  Country: None (occurrence: None)
  Receive Date: 20080219
  Receipt Date: 20080212
  Transmission Date: 20080703
  Serious: Yes (Hospitalization)
  Sender: FDA-Public Use
  Company Number: US-GENENTECH-247429

PATIENT
  Sex: Male
  Weight: 124.72 kg

DRUGS (1)
  1. XOLAIR [Suspect]
     Indication: ASTHMA
     Dosage: UNK, 1/MONTH
     Dates: start: 20060201, end: 20070601

REACTIONS (1)
  - DYSKINESIA OESOPHAGEAL [None]
